FAERS Safety Report 4595722-6 (Version None)
Quarter: 2005Q1

REPORT INFORMATION
  Report Type: 
  Country: None (occurrence: None)
  Receive Date: 20050224
  Receipt Date: 20050204
  Transmission Date: 20050727
  Serious: Yes (Hospitalization, Other)
  Sender: FDA-Public Use
  Company Number: GBS050216577

PATIENT
  Sex: Female

DRUGS (1)
  1. PERGOLIDE (PERGOLIDE MESYLATE) [Suspect]
     Indication: PARKINSON'S DISEASE

REACTIONS (3)
  - DRUG EXPOSURE DURING PREGNANCY [None]
  - FEAR [None]
  - MENTAL DISORDER [None]
